FAERS Safety Report 12656150 (Version 1)
Quarter: 2016Q3

REPORT INFORMATION
  Report Type: Spontaneous
  Country: US (occurrence: US)
  Receive Date: 20160816
  Receipt Date: 20160816
  Transmission Date: 20161109
  Serious: No
  Sender: FDA-Public Use
  Company Number: US-ELI_LILLY_AND_COMPANY-US201607012092

PATIENT
  Age: 57 Year
  Sex: Male

DRUGS (3)
  1. METFORMIN [Concomitant]
     Active Substance: METFORMIN HYDROCHLORIDE
  2. CIALIS [Suspect]
     Active Substance: TADALAFIL
     Indication: ERECTILE DYSFUNCTION
     Dosage: 20 MG, PRN
     Route: 048
  3. LOSARTAN. [Concomitant]
     Active Substance: LOSARTAN

REACTIONS (2)
  - Benign prostatic hyperplasia [Not Recovered/Not Resolved]
  - Blood testosterone decreased [Unknown]

NARRATIVE: CASE EVENT DATE: 201510
